FAERS Safety Report 5406684-3 (Version None)
Quarter: 2007Q3

REPORT INFORMATION
  Report Type: 
  Country: None (occurrence: None)
  Receive Date: 20070803
  Receipt Date: 20070803
  Transmission Date: 20080115
  Serious: Yes (Other)
  Sender: FDA-Public Use
  Company Number: None

PATIENT
  Age: 60 Year
  Sex: Female
  Weight: 87.5442 kg

DRUGS (6)
  1. CARBOPLATIN [Suspect]
     Indication: OVARIAN CANCER RECURRENT
     Dosage: 310 MG IN 100 ML D5W Q 28 DAYS
     Dates: start: 20070425
  2. CARBOPLATIN [Suspect]
     Indication: OVARIAN CANCER RECURRENT
     Dosage: 310 MG IN 100 ML D5W Q 28 DAYS
     Dates: start: 20070625
  3. CARBOPLATIN [Suspect]
     Indication: OVARIAN CANCER RECURRENT
     Dosage: 310 MG IN 100 ML D5W Q 28 DAYS
     Dates: start: 20070725
  4. GEMZAR [Concomitant]
  5. IMITREX [Concomitant]
  6. DEXAMETHASONE 0.5MG TAB [Concomitant]

REACTIONS (6)
  - ABDOMINAL PAIN [None]
  - DRUG HYPERSENSITIVITY [None]
  - DYSPHAGIA [None]
  - ERYTHEMA [None]
  - HYPOTENSION [None]
  - MUSCLE SPASMS [None]
